FAERS Safety Report 12270440 (Version 1)
Quarter: 2016Q2

REPORT INFORMATION
  Report Type: Spontaneous
  Country: US (occurrence: US)
  Receive Date: 20160415
  Receipt Date: 20160415
  Transmission Date: 20160815
  Serious: No
  Sender: FDA-Public Use
  Company Number: US-ASTRAZENECA-2016SE39660

PATIENT

DRUGS (1)
  1. NEXIUM 24HR [Suspect]
     Active Substance: ESOMEPRAZOLE MAGNESIUM
     Dosage: TAKE IT WEEKDAYS, AND LAY OFF ON WEEKENDS, CYCLIC
     Route: 048

REACTIONS (3)
  - Product use issue [Unknown]
  - Depressed mood [Unknown]
  - Sluggishness [Unknown]
